FAERS Safety Report 5667128-X (Version None)
Quarter: 2008Q1

REPORT INFORMATION
  Report Type: 
  Country: None (occurrence: None)
  Receive Date: 20080315
  Receipt Date: 20080110
  Transmission Date: 20080703
  Serious: No
  Sender: FDA-Public Use
  Company Number: US-ABBOTT-08P-163-0433561-00

PATIENT
  Sex: Female
  Weight: 56.75 kg

DRUGS (16)
  1. HUMIRA [Suspect]
     Indication: PSORIATIC ARTHROPATHY
     Route: 058
     Dates: start: 20080110
  2. ASPIRIN [Concomitant]
     Indication: CARDIOVASCULAR EVENT PROPHYLAXIS
     Route: 048
  3. SERTRALINE [Concomitant]
     Indication: PAIN
     Route: 048
  4. ESOMEPRAZOLE MAGNESIUM [Concomitant]
     Indication: GASTROOESOPHAGEAL REFLUX DISEASE
     Route: 048
  5. CALCIUM [Concomitant]
     Indication: MINERAL SUPPLEMENTATION
     Route: 048
  6. VITAMINS C + D [Concomitant]
     Indication: VITAMIN SUPPLEMENTATION
     Route: 048
  7. GLICLAZIDE [Concomitant]
     Indication: MENIERE'S DISEASE
     Route: 048
  8. VITAMIN CAP [Concomitant]
     Indication: VITAMIN SUPPLEMENTATION
     Route: 048
  9. VICODIN [Concomitant]
     Indication: PAIN MANAGEMENT
     Route: 048
  10. FENOFIBRATE [Concomitant]
     Indication: BLOOD CHOLESTEROL INCREASED
     Route: 048
  11. SIMVASTATIN [Concomitant]
     Indication: BLOOD CHOLESTEROL INCREASED
     Route: 048
  12. FOLIC ACID [Concomitant]
     Indication: VITAMIN SUPPLEMENTATION
     Route: 048
  13. IMIPRAMINE [Concomitant]
     Indication: SLEEP DISORDER THERAPY
     Route: 048
  14. PLANQUINIL [Concomitant]
     Indication: ARTHRALGIA
     Route: 048
  15. GABAPENTIN [Concomitant]
     Indication: FIBROMYALGIA
     Route: 048
  16. IRON SUPPLEMENT [Concomitant]
     Indication: ANAEMIA
     Route: 048

REACTIONS (1)
  - INJECTION SITE PAIN [None]
